FAERS Safety Report 4340027-1 (Version None)
Quarter: 2004Q2

REPORT INFORMATION
  Report Type: 
  Country: None (occurrence: None)
  Receive Date: 20040412
  Receipt Date: 20040402
  Transmission Date: 20050107
  Serious: Yes (Death)
  Sender: FDA-Public Use
  Company Number: 04P-150-0255943-00

PATIENT
  Age: 38 Year
  Sex: Male

DRUGS (6)
  1. BIAXIN [Suspect]
     Indication: DRUG USE FOR UNKNOWN INDICATION
     Dosage: PER ORAL
     Route: 048
     Dates: start: 20031230, end: 20031231
  2. LIORESAL [Concomitant]
  3. MORFIN-SKOPOLAMIN [Concomitant]
  4. BIOGLAN [Concomitant]
  5. STESOLID NOVUM [Concomitant]
  6. EMULSION F INJECTION [Concomitant]

REACTIONS (17)
  - ANURIA [None]
  - APNOEA [None]
  - BLOOD LACTATE DEHYDROGENASE INCREASED [None]
  - DEHYDRATION [None]
  - DRUG TOXICITY [None]
  - DYSPHAGIA [None]
  - EPILEPSY [None]
  - GASTROINTESTINAL HAEMORRHAGE [None]
  - GENERAL NUTRITION DISORDER [None]
  - HAEMATOCHEZIA [None]
  - HEPATOTOXICITY [None]
  - HYPERHIDROSIS [None]
  - INCREASED BRONCHIAL SECRETION [None]
  - JAUNDICE [None]
  - LIVER DISORDER [None]
  - LOSS OF CONSCIOUSNESS [None]
  - THROMBOCYTOPENIA [None]
